FAERS Safety Report 4534430-4 (Version None)
Quarter: 2004Q4

REPORT INFORMATION
  Report Type: 
  Country: None (occurrence: None)
  Receive Date: 20041221
  Receipt Date: 20041221
  Transmission Date: 20050328
  Serious: Yes (Life-Threatening)
  Sender: FDA-Public Use
  Company Number: None

PATIENT
  Age: 39 Year
  Sex: Female
  Weight: 52.1637 kg

DRUGS (1)
  1. INTERFERON [Suspect]
     Indication: HEPATITIS C
     Dosage: 120-150 (3/WEEK) MICROGRAMS (030)
     Dates: start: 20010101, end: 20010214

REACTIONS (3)
  - PSYCHOTIC DISORDER [None]
  - PULMONARY SARCOIDOSIS [None]
  - SUICIDAL IDEATION [None]
